FAERS Safety Report 5755767-7 (Version None)
Quarter: 2008Q2

REPORT INFORMATION
  Report Type: 
  Country: None (occurrence: None)
  Receive Date: 20080528
  Receipt Date: 20080520
  Transmission Date: 20081010
  Serious: Yes (Hospitalization)
  Sender: FDA-Public Use
  Company Number: 2008SP007324

PATIENT
  Age: 33 Year
  Sex: Female
  Weight: 50 kg

DRUGS (14)
  1. TEMODAL [Suspect]
     Indication: GLIOBLASTOMA MULTIFORME
     Dosage: 100 MG, QD. PO, 200 MG, QD, PO
     Route: 048
     Dates: start: 20070312, end: 20070316
  2. TEMODAL [Suspect]
     Indication: GLIOBLASTOMA MULTIFORME
     Dosage: 100 MG, QD. PO, 200 MG, QD, PO
     Route: 048
     Dates: start: 20070327, end: 20070423
  3. TEMODAL [Suspect]
     Indication: GLIOBLASTOMA MULTIFORME
     Dosage: 100 MG, QD. PO, 200 MG, QD, PO
     Route: 048
     Dates: start: 20070612, end: 20070616
  4. TEMODAL [Suspect]
     Indication: GLIOBLASTOMA MULTIFORME
     Dosage: 100 MG, QD. PO, 200 MG, QD, PO
     Route: 048
     Dates: start: 20070710, end: 20070714
  5. TEMODAL [Suspect]
     Indication: GLIOBLASTOMA MULTIFORME
     Dosage: 100 MG, QD. PO, 200 MG, QD, PO
     Route: 048
     Dates: start: 20070907, end: 20070911
  6. TEMODAL [Suspect]
     Indication: GLIOBLASTOMA MULTIFORME
     Dosage: 100 MG, QD. PO, 200 MG, QD, PO
     Route: 048
     Dates: start: 20071012, end: 20071016
  7. TEMODAL [Suspect]
     Indication: GLIOBLASTOMA MULTIFORME
     Dosage: 100 MG, QD. PO, 200 MG, QD, PO
     Route: 048
     Dates: start: 20071113, end: 20071117
  8. TEMODAL [Suspect]
     Indication: GLIOBLASTOMA MULTIFORME
     Dosage: 100 MG, QD. PO, 200 MG, QD, PO
     Route: 048
     Dates: start: 20071218, end: 20071222
  9. TEMODAL [Suspect]
     Indication: GLIOBLASTOMA MULTIFORME
     Dosage: 100 MG, QD. PO, 200 MG, QD, PO
     Route: 048
     Dates: start: 20080122, end: 20080126
  10. TEMODAL [Suspect]
     Indication: GLIOBLASTOMA MULTIFORME
     Dosage: 100 MG, QD. PO, 200 MG, QD, PO
     Route: 048
     Dates: start: 20080205, end: 20080209
  11. BERIPLAST (FACTOR XIII, FIBRINOGEN) [Concomitant]
  12. FAMOTIDINE [Concomitant]
  13. RINDERON [Concomitant]
  14. PRIMPERAN TAB [Concomitant]

REACTIONS (2)
  - GENERAL PHYSICAL HEALTH DETERIORATION [None]
  - HEPATITIS B [None]
